FAERS Safety Report 9613132 (Version 1)
Quarter: 2013Q4

REPORT INFORMATION
  Report Type: Spontaneous
  Country: US (occurrence: US)
  Receive Date: 20131010
  Receipt Date: 20131010
  Transmission Date: 20140711
  Serious: No
  Sender: FDA-Public Use
  Company Number: US-TEVA-437596USA

PATIENT
  Age: 44 Year
  Sex: Female
  Weight: 59.02 kg

DRUGS (3)
  1. PLAN B ONE-STEP [Suspect]
     Indication: POST COITAL CONTRACEPTION
     Dosage: 1.5 MILLIGRAM DAILY;
     Route: 048
     Dates: start: 20131007, end: 20131007
  2. MAGNESIUM CITRATE [Concomitant]
     Indication: GASTROINTESTINAL MOTILITY DISORDER
  3. IMITREX [Concomitant]
     Indication: MIGRAINE
     Dates: start: 2006

REACTIONS (2)
  - Gastrointestinal motility disorder [Not Recovered/Not Resolved]
  - Abdominal pain [Not Recovered/Not Resolved]
